FAERS Safety Report 7532846 (Version 2)
Quarter: 2013Q3

REPORT INFORMATION
  Report Type: Spontaneous
  Country: US (occurrence: US)
  Receive Date: 20100806
  Receipt Date: 20130730
  Transmission Date: 20140515
  Serious: Yes (Hospitalization, Other)
  Sender: FDA-Public Use
  Company Number: US-PFIZER INC-2008065514

PATIENT
  Age: 12 Month
  Sex: Male
  Weight: 12 kg

DRUGS (15)
  1. DILANTIN-125 [Suspect]
     Indication: CONVULSION
     Dosage: 25 MG, 3X/DAY
     Route: 048
     Dates: start: 19981029, end: 19981111
  2. DILANTIN-125 [Suspect]
     Dosage: 41.7 MG, 3X/DAY
     Route: 048
     Dates: start: 19981109
  3. DILANTIN-125 [Suspect]
     Dosage: 30 MG, 3X/DAY
     Route: 048
     Dates: start: 19981111
  4. DILANTIN-125 [Suspect]
     Dosage: 20 MG, 3X/DAY
     Route: 048
     Dates: start: 19981112
  5. CEFTRIAXONE [Concomitant]
     Dosage: UNK
  6. CHLORAL HYDRATE [Concomitant]
     Dosage: 900 MG, UNK
     Dates: start: 19981028
  7. ACETAMINOPHEN [Concomitant]
     Dosage: UNK
  8. ACETAMINOPHEN [Concomitant]
     Dosage: UNK
     Route: 048
  9. SODIUM CHLORIDE [Concomitant]
     Dosage: UNK
  10. ROCEPHIN [Concomitant]
     Dosage: UNK
     Route: 042
     Dates: start: 19981027
  11. TYLENOL [Concomitant]
     Indication: PYREXIA
     Dosage: 120 MG, AS NEEDED
     Route: 048
     Dates: start: 19981027
  12. VALIUM [Concomitant]
     Indication: CONVULSION
     Dosage: 4 MG, UNK
     Route: 042
     Dates: start: 19981027
  13. VALIUM [Concomitant]
     Dosage: 5 MG, UNK
     Route: 048
     Dates: start: 19981028
  14. CEREBYX [Concomitant]
     Dosage: 100 MG, UNK
     Route: 030
     Dates: start: 19981028
  15. CEREBYX [Concomitant]
     Dosage: 72 MG, UNK
     Route: 030
     Dates: start: 19981030

REACTIONS (2)
  - Toxic epidermal necrolysis [Recovering/Resolving]
  - Stevens-Johnson syndrome [Recovering/Resolving]
